FAERS Safety Report 23284848 (Version 1)
Quarter: 2023Q4

REPORT INFORMATION
  Report Type: Report from Study
  Country: CN (occurrence: CN)
  Receive Date: 20231211
  Receipt Date: 20231211
  Transmission Date: 20240109
  Serious: Yes (Hospitalization, Other)
  Sender: FDA-Public Use
  Company Number: CN-GILEAD-2023-0653826

PATIENT
  Age: 53 Year
  Sex: Male

DRUGS (1)
  1. ADEFOVIR DIPIVOXIL [Suspect]
     Active Substance: ADEFOVIR DIPIVOXIL
     Indication: Chronic hepatitis B
     Dosage: 10 MG, QD (LOW DOSE)
     Route: 065

REACTIONS (3)
  - Osteomalacia [Unknown]
  - Hypophosphataemic osteomalacia [Unknown]
  - Fanconi syndrome acquired [Unknown]
